FAERS Safety Report 24745889 (Version 1)
Quarter: 2024Q4

REPORT INFORMATION
  Report Type: Spontaneous
  Country: US (occurrence: US)
  Receive Date: 20241218
  Receipt Date: 20241218
  Transmission Date: 20250115
  Serious: No
  Sender: ROCHE
  Company Number: US-ROCHE-10000156519

PATIENT
  Age: 13 Year
  Sex: Male
  Weight: 47.63 kg

DRUGS (3)
  1. NUTROPIN [Suspect]
     Active Substance: SOMATROPIN
     Indication: Growth hormone deficiency
     Dosage: DOSAGE: 2.6MG EVERY 6 DAYS OF THE WEEK
     Route: 058
     Dates: start: 202411
  2. NUTROPIN [Suspect]
     Active Substance: SOMATROPIN
     Dosage: DOSAGE:  2.4MG EVERY DAY FOR 6 DAYS OF THE WEEK
     Route: 058
     Dates: end: 202411
  3. NUTROPIN [Suspect]
     Active Substance: SOMATROPIN
     Dosage: DOSAGE: 1.2MG EVERY 6 DAYS OF THE WEEK
     Route: 058
     Dates: start: 2021

REACTIONS (3)
  - Product dose omission issue [Unknown]
  - Liquid product physical issue [Unknown]
  - No adverse event [Unknown]

NARRATIVE: CASE EVENT DATE: 20241204
